FAERS Safety Report 8499394-X (Version None)
Quarter: 2012Q2

REPORT INFORMATION
  Report Type: 
  Country: None (occurrence: None)
  Receive Date: 20120620
  Receipt Date: 20120608
  Transmission Date: 20120825
  Serious: Yes (Other)
  Sender: FDA-Public Use
  Company Number: 2012032605

PATIENT
  Sex: Male
  Weight: 91 kg

DRUGS (8)
  1. ENALAPRIL MALEATE [Concomitant]
  2. ENOXAPARIN SODIUM [Concomitant]
  3. MAGNESIUM SULFATE [Concomitant]
  4. TAMSULOSIN HCL [Concomitant]
  5. ALBUMINAR [Suspect]
     Indication: HYPOTENSION
     Dosage: (25 GM (50ML) IVPB; RAPID INFUSION; 25% SOLUTION INTRAVENOUS BOLUS)
     Route: 040
     Dates: start: 20120302, end: 20120302
  6. PROPOFOL [Concomitant]
  7. PHENYLEPHRINE HCL [Concomitant]
  8. LACTATED RINGER'S (RINGER-LACTATE /01126301/) [Concomitant]

REACTIONS (5)
  - ANAPHYLACTIC REACTION [None]
  - ERYTHEMA [None]
  - RASH [None]
  - SWELLING [None]
  - OFF LABEL USE [None]
